FAERS Safety Report 10120934 (Version 4)
Quarter: 2014Q2

REPORT INFORMATION
  Report Type: Spontaneous
  Country: SI (occurrence: SI)
  Receive Date: 20140425
  Receipt Date: 20140521
  Transmission Date: 20141212
  Serious: Yes (Other)
  Sender: FDA-Public Use
  Company Number: PHHY2014SI048018

PATIENT
  Age: 26 Year
  Sex: Male

DRUGS (1)
  1. GILENYA [Suspect]
     Indication: MULTIPLE SCLEROSIS
     Route: 048
     Dates: start: 20140216, end: 20140303

REACTIONS (11)
  - JC virus test positive [Unknown]
  - Multiple sclerosis relapse [Recovering/Resolving]
  - Hemiparesis [Recovering/Resolving]
  - Ataxia [Recovering/Resolving]
  - Mood altered [Recovering/Resolving]
  - Hemianopia [Unknown]
  - Clumsiness [Unknown]
  - Nervous system disorder [Unknown]
  - Personality change [Unknown]
  - Dysarthria [Unknown]
  - Visual impairment [Unknown]
